FAERS Safety Report 10182400 (Version 1)
Quarter: 2014Q2

REPORT INFORMATION
  Report Type: Spontaneous
  Country: US (occurrence: None)
  Receive Date: 20140519
  Receipt Date: 20140519
  Transmission Date: 20141212
  Serious: Yes (Other)
  Sender: FDA-Public Use
  Company Number: None

PATIENT
  Age: 47 Year
  Sex: Female
  Weight: 43.09 kg

DRUGS (2)
  1. TOPIRAMATE [Suspect]
     Indication: MIGRAINE
     Route: 048
     Dates: start: 20131103, end: 20131203
  2. VITAMIN D [Concomitant]

REACTIONS (3)
  - Amnesia [None]
  - Alopecia [None]
  - Product substitution issue [None]
